FAERS Safety Report 7563592-X (Version None)
Quarter: 2011Q2

REPORT INFORMATION
  Report Type: 
  Country: None (occurrence: None)
  Receive Date: 20110621
  Receipt Date: 20110621
  Transmission Date: 20111010
  Serious: Yes (Life-Threatening, Hospitalization)
  Sender: FDA-Public Use
  Company Number: None

PATIENT
  Age: 75 Year
  Sex: Male
  Weight: 100.6985 kg

DRUGS (1)
  1. FLUTAMIDE [Suspect]
     Indication: PROSTATE CANCER
     Dosage: 125 MG CAPSULE 6 TIMES/DAY
     Dates: start: 20110128, end: 20110208

REACTIONS (3)
  - PYREXIA [None]
  - MALAISE [None]
  - ADVERSE EVENT [None]
